FAERS Safety Report 4795225-X (Version None)
Quarter: 2005Q4

REPORT INFORMATION
  Report Type: 
  Country: None (occurrence: None)
  Receive Date: 20051006
  Receipt Date: 20050916
  Transmission Date: 20060501
  Serious: Yes (Hospitalization, Other)
  Sender: FDA-Public Use
  Company Number: ENTC2005-0271

PATIENT
  Age: 69 Year
  Sex: Female

DRUGS (5)
  1. STALEVO 100 [Suspect]
     Indication: PARKINSONISM
     Dosage: 100/25/200 MG ORAL; 50/12, 5/200 MG ORAL
     Route: 048
     Dates: start: 20050805, end: 20050830
  2. STALEVO 100 [Suspect]
     Indication: PARKINSONISM
     Dosage: 100/25/200 MG ORAL; 50/12, 5/200 MG ORAL
     Route: 048
     Dates: start: 20050831
  3. ALOPERIDOL          (HALOPERIDOL) [Suspect]
     Dosage: 30MG      (10MG, 3 IN 1 DAY
     Route: 048
     Dates: start: 20050815, end: 20050825
  4. SINEMET [Concomitant]
  5. PARLODEL [Concomitant]

REACTIONS (5)
  - BLOOD CREATINE PHOSPHOKINASE INCREASED [None]
  - INFECTION [None]
  - MUSCLE RIGIDITY [None]
  - PROSTRATION [None]
  - PYREXIA [None]
